FAERS Safety Report 9398925 (Version 1)
Quarter: 2013Q3

REPORT INFORMATION
  Report Type: Spontaneous
  Country: FR (occurrence: FR)
  Receive Date: 20130712
  Receipt Date: 20130712
  Transmission Date: 20140515
  Serious: Yes (Other)
  Sender: FDA-Public Use
  Company Number: FR-TEVA-417416ISR

PATIENT
  Age: 67 Year
  Sex: Male
  Weight: 70 kg

DRUGS (1)
  1. FUROSEMIDE 40 MG [Suspect]
     Indication: CARDIAC FAILURE
     Dosage: 40 MILLIGRAM DAILY; SCORED TABLETS
     Route: 048
     Dates: start: 20130528, end: 20130610

REACTIONS (4)
  - Dyspnoea at rest [Recovered/Resolved]
  - Oedema peripheral [Recovered/Resolved]
  - Asthenia [Recovered/Resolved]
  - Somnolence [Recovered/Resolved]
